FAERS Safety Report 23859638 (Version 1)
Quarter: 2024Q2

REPORT INFORMATION
  Report Type: Spontaneous
  Country: US (occurrence: None)
  Receive Date: 20240515
  Receipt Date: 20240515
  Transmission Date: 20240716
  Serious: Yes (Other)
  Sender: FDA-Public Use
  Company Number: None

PATIENT
  Age: 57 Year
  Sex: Female
  Weight: 85.5 kg

DRUGS (2)
  1. SCOPOLAMINE TRANDERMAL SYSTEM [Suspect]
     Active Substance: SCOPOLAMINE
     Dates: start: 20240503, end: 20240506
  2. Omeprazolle [Concomitant]

REACTIONS (6)
  - Mydriasis [None]
  - Vision blurred [None]
  - Dizziness [None]
  - Tremor [None]
  - Nervousness [None]
  - Eye inflammation [None]

NARRATIVE: CASE EVENT DATE: 20240506
